FAERS Safety Report 14478183 (Version 1)
Quarter: 2018Q1

REPORT INFORMATION
  Report Type: Report from Study
  Country: DE (occurrence: DE)
  Receive Date: 20180202
  Receipt Date: 20180202
  Transmission Date: 20180509
  Serious: Yes (Life-Threatening, Hospitalization, Disabling)
  Sender: FDA-Public Use
  Company Number: DE-BEH-199401641BW

PATIENT
  Age: 74 Year
  Sex: Male

DRUGS (7)
  1. METHYLPREDNISOLON [Concomitant]
     Active Substance: METHYLPREDNISOLONE
     Indication: COLITIS ULCERATIVE
     Dosage: DAILY DOSE QUANTITY: 48, DAILY DOSE UNIT: MG
     Route: 048
     Dates: start: 19940902, end: 19940909
  2. ISOSORBIDINITRAT [Concomitant]
     Indication: CORONARY ARTERY DISEASE
     Dosage: DAILY DOSE QUANTITY: 40, DAILY DOSE UNIT: MG
     Route: 048
     Dates: start: 19940909, end: 19940912
  3. METHYLPREDNISOLON [Concomitant]
     Active Substance: METHYLPREDNISOLONE
     Dosage: DAILY DOSE QUANTITY: 32, DAILY DOSE UNIT: MG
     Route: 048
     Dates: start: 19940910, end: 19940915
  4. PREDNISON [Concomitant]
     Active Substance: PREDNISONE
     Indication: COLITIS ULCERATIVE
     Dosage: DAILY DOSE QUANTITY: 60, DAILY DOSE UNIT: MG
     Route: 048
     Dates: start: 19940902, end: 19940909
  5. PREDNISON [Concomitant]
     Active Substance: PREDNISONE
     Dosage: DAILY DOSE QUANTITY: 40, DAILY DOSE UNIT: MG
     Route: 048
     Dates: start: 19940910
  6. FIBROGAMMIN P [Suspect]
     Active Substance: FACTOR XIII CONCENTRATE (HUMAN)
     Indication: COLITIS ULCERATIVE
     Dosage: DAILY DOSE QUANTITY: 3750, DAILY DOSE UNIT: IU
     Route: 042
     Dates: start: 19940902, end: 19940902
  7. FIBROGAMMIN P [Suspect]
     Active Substance: FACTOR XIII CONCENTRATE (HUMAN)
     Dosage: DAILY DOSE QUANTITY: 1250, DAILY DOSE UNIT: IU
     Route: 042
     Dates: start: 19940903, end: 19940911

REACTIONS (2)
  - Coronary artery occlusion [Unknown]
  - Chest pain [Unknown]

NARRATIVE: CASE EVENT DATE: 19940912
